FAERS Safety Report 14087060 (Version 1)
Quarter: 2017Q4

REPORT INFORMATION
  Report Type: Spontaneous
  Country: US (occurrence: US)
  Receive Date: 20171013
  Receipt Date: 20171013
  Transmission Date: 20180321
  Serious: No
  Sender: FDA-Public Use
  Company Number: US-ASTRAZENECA-2017SF03692

PATIENT
  Age: 28485 Day
  Sex: Female

DRUGS (4)
  1. CARDIZEM [Concomitant]
     Active Substance: DILTIAZEM HYDROCHLORIDE
     Indication: BLOOD PRESSURE DECREASED
  2. CLARITIN [Concomitant]
     Active Substance: LORATADINE
     Indication: RHINORRHOEA
  3. SYMBICORT [Suspect]
     Active Substance: BUDESONIDE\FORMOTEROL FUMARATE DIHYDRATE
     Indication: DYSPNOEA
     Dosage: ONE PUFF, EVERYDAY
     Route: 055
  4. IRON [Concomitant]
     Active Substance: IRON

REACTIONS (11)
  - Rhinorrhoea [Not Recovered/Not Resolved]
  - Insomnia [Not Recovered/Not Resolved]
  - Hypoaesthesia [Not Recovered/Not Resolved]
  - Fatigue [Not Recovered/Not Resolved]
  - Liver function test abnormal [Unknown]
  - Decreased appetite [Not Recovered/Not Resolved]
  - Feeling cold [Unknown]
  - Blood test abnormal [Unknown]
  - Motor dysfunction [Unknown]
  - Nail discolouration [Not Recovered/Not Resolved]
  - Nausea [Recovering/Resolving]

NARRATIVE: CASE EVENT DATE: 20170524
